FAERS Safety Report 6217026-8 (Version None)
Quarter: 2009Q2

REPORT INFORMATION
  Report Type: 
  Country: None (occurrence: None)
  Receive Date: 20090604
  Receipt Date: 20090520
  Transmission Date: 20091009
  Serious: Yes (Other)
  Sender: FDA-Public Use
  Company Number: 2009001536

PATIENT
  Age: 71 Year
  Sex: Male

DRUGS (3)
  1. TARCEVA [Suspect]
     Indication: SQUAMOUS CELL CARCINOMA
     Dosage: 150 MG QD ORAL
     Route: 048
     Dates: start: 20090405, end: 20090504
  2. PREDNISOLONE [Concomitant]
  3. XYZALL (LEVOCETIRIZINE) [Concomitant]

REACTIONS (3)
  - PRURITUS [None]
  - RASH [None]
  - SWELLING FACE [None]
